FAERS Safety Report 25318756 (Version 1)
Quarter: 2025Q2

REPORT INFORMATION
  Report Type: Spontaneous
  Country: HR (occurrence: HR)
  Receive Date: 20250515
  Receipt Date: 20250515
  Transmission Date: 20250716
  Serious: Yes (Other)
  Sender: EMD SERONO INC
  Company Number: None

PATIENT
  Age: 32 Year
  Sex: Female
  Weight: 48 kg

DRUGS (8)
  1. MAVENCLAD [Suspect]
     Active Substance: CLADRIBINE
     Indication: Multiple sclerosis
  2. MAVENCLAD [Suspect]
     Active Substance: CLADRIBINE
  3. MAVENCLAD [Suspect]
     Active Substance: CLADRIBINE
  4. MAVENCLAD [Suspect]
     Active Substance: CLADRIBINE
  5. MAVENCLAD [Suspect]
     Active Substance: CLADRIBINE
  6. MAVENCLAD [Suspect]
     Active Substance: CLADRIBINE
  7. MAVENCLAD [Suspect]
     Active Substance: CLADRIBINE
  8. MAVENCLAD [Suspect]
     Active Substance: CLADRIBINE

REACTIONS (5)
  - Multiple sclerosis relapse [Recovered/Resolved with Sequelae]
  - Multiple sclerosis [Recovered/Resolved with Sequelae]
  - Multiple sclerosis [Recovered/Resolved with Sequelae]
  - Expanded disability status scale score increased [Recovered/Resolved with Sequelae]
  - Drug ineffective [Recovered/Resolved with Sequelae]

NARRATIVE: CASE EVENT DATE: 20230101
